FAERS Safety Report 25971597 (Version 1)
Quarter: 2025Q4

REPORT INFORMATION
  Report Type: Spontaneous
  Country: JP (occurrence: JP)
  Receive Date: 20251029
  Receipt Date: 20251029
  Transmission Date: 20260118
  Serious: Yes (Hospitalization, Other)
  Sender: STRIDES
  Company Number: JP-STRIDES ARCOLAB LIMITED-2025SP013403

PATIENT

DRUGS (3)
  1. PREDNISOLONE [Suspect]
     Active Substance: PREDNISOLONE
     Indication: Neuromyelitis optica spectrum disorder
     Dosage: UNK
     Route: 048
  2. PREDNISOLONE [Suspect]
     Active Substance: PREDNISOLONE
     Dosage: 12 MILLIGRAMS
     Route: 048
  3. SATRALIZUMAB [Suspect]
     Active Substance: SATRALIZUMAB
     Indication: Neuromyelitis optica spectrum disorder
     Dosage: 120MG AT WEEKS 0, 2, AND 4 AND THEN EVERY 4 WEEKS THEREAFTER AS MAINTENANCE THERAPY
     Route: 058

REACTIONS (3)
  - Neuromyelitis optica spectrum disorder [Unknown]
  - Urinary tract infection [Recovered/Resolved]
  - Off label use [Unknown]
